FAERS Safety Report 22218571 (Version 1)
Quarter: 2023Q2

REPORT INFORMATION
  Report Type: Spontaneous
  Country: US (occurrence: US)
  Receive Date: 20230417
  Receipt Date: 20230417
  Transmission Date: 20230722
  Serious: Yes (Other)
  Sender: FDA-Public Use
  Company Number: US-MYLANLABS-2023M1040368

PATIENT
  Age: 40 Year
  Sex: Female

DRUGS (10)
  1. PACLITAXEL [Suspect]
     Active Substance: PACLITAXEL
     Indication: Triple negative breast cancer
     Dosage: UNK UNK, QW (RECEIVED WEEKLY NEOADJUVANT CHEMOTHERAPY)
     Route: 065
  2. PACLITAXEL [Suspect]
     Active Substance: PACLITAXEL
     Dosage: 100 MILLIGRAM/SQ. METER,ON DAY 1, DAY 8, AND DAY 15 AND RECEIVED 28 DAYS CYCLE.....
     Route: 065
  3. CARBOPLATIN [Suspect]
     Active Substance: CARBOPLATIN
     Indication: Triple negative breast cancer
     Dosage: 80 MILLIGRAM/SQ. METER, RECEIVED WEEKLY NEOADJUVANT CHEMOTHERAPY
     Route: 065
  4. DOXORUBICIN [Suspect]
     Active Substance: DOXORUBICIN
     Indication: Triple negative breast cancer
     Dosage: 60 MILLIGRAM/SQ. METER, BIWEEKLY
     Route: 065
  5. CYCLOPHOSPHAMIDE [Suspect]
     Active Substance: CYCLOPHOSPHAMIDE
     Indication: Triple negative breast cancer
     Dosage: 600 MILLIGRAM/SQ. METER, BIWEEKLY
     Route: 065
  6. ATEZOLIZUMAB [Suspect]
     Active Substance: ATEZOLIZUMAB
     Indication: Triple negative breast cancer
     Dosage: 840 MILLIGRAM/SQ. METER,ON DAY 1 AND DAY 15 AND RECEIVED 28 DAYS CYCLES....
     Route: 065
  7. IPILIMUMAB [Suspect]
     Active Substance: IPILIMUMAB
     Indication: Triple negative breast cancer
     Dosage: 1 MILLIGRAM/KILOGRAM, Q21D,RECEIVED IMMUNOTHERAPY
     Route: 065
     Dates: start: 202008
  8. NIVOLUMAB [Suspect]
     Active Substance: NIVOLUMAB
     Indication: Triple negative breast cancer
     Dosage: 3 MILLIGRAM/KILOGRAM, Q21D,RECEIVED IMMUNOTHERAPY
     Route: 065
     Dates: start: 202008
  9. OLAPARIB [Suspect]
     Active Substance: OLAPARIB
     Indication: Triple negative breast cancer
     Dosage: UNK
     Route: 065
  10. PEMBROLIZUMAB [Suspect]
     Active Substance: PEMBROLIZUMAB
     Indication: Triple negative breast cancer
     Dosage: UNK
     Route: 065

REACTIONS (1)
  - Drug ineffective [Unknown]
